FAERS Safety Report 18186002 (Version 2)
Quarter: 2020Q3

REPORT INFORMATION
  Report Type: Spontaneous
  Country: US (occurrence: US)
  Receive Date: 20200824
  Receipt Date: 20200826
  Transmission Date: 20201103
  Serious: No
  Sender: FDA-Public Use
  Company Number: US-SA-2020SA215478

PATIENT

DRUGS (1)
  1. DUPIXENT [Suspect]
     Active Substance: DUPILUMAB
     Indication: ASTHMA
     Dosage: 300 MG, QOW (EVERY 14 DAYS)
     Route: 058
     Dates: start: 20200114

REACTIONS (3)
  - Injection site mass [Unknown]
  - Eye pain [Unknown]
  - Product use issue [Unknown]

NARRATIVE: CASE EVENT DATE: 20200114
